FAERS Safety Report 6406245-3 (Version None)
Quarter: 2009Q4

REPORT INFORMATION
  Report Type: 
  Country: None (occurrence: None)
  Receive Date: 20091019
  Receipt Date: 20091007
  Transmission Date: 20100525
  Serious: Yes (Hospitalization)
  Sender: FDA-Public Use
  Company Number: PHHY2009AR43399

PATIENT
  Sex: Male

DRUGS (3)
  1. RASILEZ [Suspect]
     Indication: HYPERTENSION
     Dosage: 150MG (1 TABLET DAILY)
     Dates: start: 20090801, end: 20090928
  2. AMLODIPINE [Concomitant]
  3. CARVEDILOL [Concomitant]

REACTIONS (1)
  - BLOOD PRESSURE INCREASED [None]
